FAERS Safety Report 6118644-8 (Version None)
Quarter: 2009Q1

REPORT INFORMATION
  Report Type: 
  Country: None (occurrence: None)
  Receive Date: 20090314
  Receipt Date: 20090224
  Transmission Date: 20090719
  Serious: No
  Sender: FDA-Public Use
  Company Number: US-ABBOTT-09P-163-0559210-00

PATIENT
  Sex: Female
  Weight: 65.83 kg

DRUGS (3)
  1. HUMIRA [Suspect]
     Indication: CROHN'S DISEASE
     Dosage: 2 - 40MG INJECTIONS
     Dates: start: 20090218, end: 20090218
  2. HUMIRA [Suspect]
     Dosage: 4 - 40MG INJECTIONS
     Dates: start: 20090204, end: 20090204
  3. HUMIRA [Suspect]

REACTIONS (2)
  - INJECTION SITE ERYTHEMA [None]
  - INJECTION SITE HAEMATOMA [None]
